FAERS Safety Report 16155555 (Version 2)
Quarter: 2019Q2

REPORT INFORMATION
  Report Type: Spontaneous
  Country: BE (occurrence: BE)
  Receive Date: 20190404
  Receipt Date: 20190515
  Transmission Date: 20190711
  Serious: Yes (Death)
  Sender: FDA-Public Use
  Company Number: BE-CELLTRION INC.-2019BE019890

PATIENT

DRUGS (4)
  1. OPDIVO [Suspect]
     Active Substance: NIVOLUMAB
     Indication: ADENOCARCINOMA
     Dosage: 1 UNK, Q2WEEKS
     Route: 065
     Dates: start: 201701
  2. METHYLPREDNISOLONE. [Concomitant]
     Active Substance: METHYLPREDNISOLONE
     Indication: PRODUCT USED FOR UNKNOWN INDICATION
     Dosage: 120 MG, QD
     Route: 042
  3. INFLIXIMAB (UNKNOWN) [Suspect]
     Active Substance: INFLIXIMAB
     Indication: COLITIS
     Dosage: 5 MG/KG
     Route: 065
  4. METHYLPREDNISOLONE. [Concomitant]
     Active Substance: METHYLPREDNISOLONE
     Dosage: 64 MG, QD
     Route: 065

REACTIONS (7)
  - Colitis [Fatal]
  - Septic shock [Fatal]
  - Off label use [Fatal]
  - Drug ineffective for unapproved indication [Fatal]
  - Infection [Fatal]
  - Abdominal abscess [Fatal]
  - Pneumonia [Fatal]

NARRATIVE: CASE EVENT DATE: 20180510
